FAERS Safety Report 12641297 (Version 6)
Quarter: 2017Q1

REPORT INFORMATION
  Report Type: Spontaneous
  Country: US (occurrence: US)
  Receive Date: 20160810
  Receipt Date: 20170301
  Transmission Date: 20170428
  Serious: No
  Sender: FDA-Public Use
  Company Number: US-PFIZER INC-2016374994

PATIENT
  Age: 63 Year
  Sex: Female

DRUGS (6)
  1. XALKORI [Suspect]
     Active Substance: CRIZOTINIB
     Dosage: 250 MG, 2X/DAY
     Route: 048
     Dates: start: 20160726
  2. FENOPROFEN. [Concomitant]
     Active Substance: FENOPROFEN
     Dosage: UNK
  3. XALKORI [Suspect]
     Active Substance: CRIZOTINIB
     Indication: NON-SMALL CELL LUNG CANCER
     Dosage: 250 MG, 2X/DAY
     Route: 048
     Dates: start: 20160526
  4. APAP W/HYDROCODONE [Concomitant]
     Active Substance: ACETAMINOPHEN\HYDROCODONE
     Dosage: UNK
  5. DRONABINOL. [Concomitant]
     Active Substance: DRONABINOL
     Dosage: UNK
  6. BACLOFEN. [Concomitant]
     Active Substance: BACLOFEN
     Dosage: UNK

REACTIONS (9)
  - Headache [Recovering/Resolving]
  - Heart rate irregular [Unknown]
  - Dry skin [Unknown]
  - Constipation [Unknown]
  - Cataract [Unknown]
  - Dysgeusia [Unknown]
  - Decreased appetite [Recovering/Resolving]
  - Visual impairment [Unknown]
  - Alopecia [Unknown]

NARRATIVE: CASE EVENT DATE: 20160601
